FAERS Safety Report 6098051-7 (Version None)
Quarter: 2009Q1

REPORT INFORMATION
  Report Type: 
  Country: None (occurrence: None)
  Receive Date: 20090227
  Receipt Date: 20090224
  Transmission Date: 20090719
  Serious: Yes (Other)
  Sender: FDA-Public Use
  Company Number: US-ALLERGAN-0902457US

PATIENT
  Age: 42 Year
  Sex: Female

DRUGS (1)
  1. BOTOX COSMETIC [Suspect]
     Indication: SKIN WRINKLING
     Dosage: 29 UNITS, SINGLE
     Route: 030
     Dates: start: 20090219, end: 20090219

REACTIONS (6)
  - EYELID OEDEMA [None]
  - FACIAL PARESIS [None]
  - FEELING JITTERY [None]
  - MEMORY IMPAIRMENT [None]
  - MENORRHAGIA [None]
  - ROSACEA [None]
